FAERS Safety Report 10081772 (Version 1)
Quarter: 2014Q2

REPORT INFORMATION
  Report Type: Spontaneous
  Country: US (occurrence: US)
  Receive Date: 20140416
  Receipt Date: 20140416
  Transmission Date: 20141212
  Serious: Yes (Other)
  Sender: FDA-Public Use
  Company Number: US-SA-2014SA042669

PATIENT
  Age: 58 Year
  Sex: Female

DRUGS (1)
  1. LANTUS [Suspect]
     Indication: DIABETES MELLITUS
     Dosage: TREATMENT START DATE: AT LEAST 5 YEARS AGO
     Route: 058

REACTIONS (3)
  - Apparent death [Recovered/Resolved]
  - Drug dose omission [Unknown]
  - Drug administration error [Unknown]
